FAERS Safety Report 15869108 (Version 1)
Quarter: 2019Q1

REPORT INFORMATION
  Report Type: Spontaneous
  Country: US (occurrence: US)
  Receive Date: 20190125
  Receipt Date: 20190125
  Transmission Date: 20190417
  Serious: Yes (Other)
  Sender: FDA-Public Use
  Company Number: US-GILEAD-2019-0385891

PATIENT
  Age: 38 Year
  Sex: Male

DRUGS (1)
  1. TRUVADA [Suspect]
     Active Substance: EMTRICITABINE\TENOFOVIR DISOPROXIL FUMARATE
     Indication: PROPHYLAXIS AGAINST HIV INFECTION
     Dosage: UNK
     Route: 065

REACTIONS (7)
  - Amnesia [Unknown]
  - Gluten sensitivity [Not Recovered/Not Resolved]
  - Milk allergy [Not Recovered/Not Resolved]
  - Muscle atrophy [Recovered/Resolved]
  - Fat tissue decreased [Unknown]
  - Weight decreased [Recovered/Resolved]
  - Food allergy [Not Recovered/Not Resolved]
